FAERS Safety Report 22159627 (Version 1)
Quarter: 2023Q1

REPORT INFORMATION
  Report Type: Report from Study
  Country: US (occurrence: US)
  Receive Date: 20230331
  Receipt Date: 20230331
  Transmission Date: 20230417
  Serious: Yes (Other)
  Sender: FDA-Public Use
  Company Number: US-002147023-NVSC2023US069812

PATIENT
  Sex: Female
  Weight: 125.19 kg

DRUGS (1)
  1. CLOBETASOL [Suspect]
     Active Substance: CLOBETASOL
     Indication: Psoriasis
     Dosage: UNK
     Route: 065

REACTIONS (3)
  - Lung cancer metastatic [Unknown]
  - Psoriatic arthropathy [Unknown]
  - Drug ineffective [Unknown]
